FAERS Safety Report 15093891 (Version 1)
Quarter: 2018Q2

REPORT INFORMATION
  Report Type: Spontaneous
  Country: US (occurrence: US)
  Receive Date: 20180629
  Receipt Date: 20180629
  Transmission Date: 20180711
  Serious: No
  Sender: FDA-Public Use
  Company Number: US-MAYNE PHARMA-2018MYN000982

PATIENT

DRUGS (5)
  1. METOPROLOL TARTRATE. [Concomitant]
     Active Substance: METOPROLOL TARTRATE
     Indication: PRODUCT USED FOR UNKNOWN INDICATION
     Dosage: UNK
     Route: 048
  2. DOFETILIDE. [Suspect]
     Active Substance: DOFETILIDE
     Indication: CARDIAC DISORDER
     Dosage: 250 MCG, BID
     Route: 048
     Dates: start: 20180424
  3. LISINOPRIL. [Concomitant]
     Active Substance: LISINOPRIL
     Indication: PRODUCT USED FOR UNKNOWN INDICATION
     Dosage: UNK
     Route: 048
  4. CALCIUM [Concomitant]
     Active Substance: CALCIUM
     Indication: PRODUCT USED FOR UNKNOWN INDICATION
     Dosage: UNK
     Route: 048
  5. PRADAXA [Concomitant]
     Active Substance: DABIGATRAN ETEXILATE MESYLATE
     Indication: PRODUCT USED FOR UNKNOWN INDICATION
     Dosage: UNK
     Route: 048

REACTIONS (7)
  - Headache [Unknown]
  - Increased upper airway secretion [Unknown]
  - Back pain [Unknown]
  - Chronic obstructive pulmonary disease [Unknown]
  - Dyspnoea [Recovering/Resolving]
  - Productive cough [Not Recovered/Not Resolved]
  - Haemoptysis [Recovered/Resolved]

NARRATIVE: CASE EVENT DATE: 20180430
